FAERS Safety Report 25385689 (Version 1)
Quarter: 2025Q2

REPORT INFORMATION
  Report Type: Spontaneous
  Country: UA (occurrence: UA)
  Receive Date: 20250602
  Receipt Date: 20250602
  Transmission Date: 20250717
  Serious: Yes (Other)
  Sender: BAYER HEALTHCARE PHARMACEUTICALS INC.
  Company Number: UA-BAYER-2025A070698

PATIENT
  Age: 31 Year
  Sex: Female

DRUGS (1)
  1. MOXIFLOXACIN [Suspect]
     Active Substance: MOXIFLOXACIN
     Indication: Pneumonia
     Route: 048

REACTIONS (5)
  - Lung disorder [None]
  - Pneumonia [None]
  - Pyrexia [None]
  - Lymphadenopathy mediastinal [None]
  - Drug ineffective [None]

NARRATIVE: CASE EVENT DATE: 20200709
